FAERS Safety Report 7511757-5 (Version None)
Quarter: 2011Q2

REPORT INFORMATION
  Report Type: 
  Country: None (occurrence: None)
  Receive Date: 20110531
  Receipt Date: 20110518
  Transmission Date: 20111010
  Serious: Yes (Disabling)
  Sender: FDA-Public Use
  Company Number: KR-NOVOPROD-328427

PATIENT

DRUGS (1)
  1. NOVORAPID [Suspect]
     Indication: DIABETES MELLITUS

REACTIONS (1)
  - BLINDNESS [None]
